FAERS Safety Report 9103665 (Version 1)
Quarter: 2013Q1

REPORT INFORMATION
  Report Type: Spontaneous
  Country: US (occurrence: US)
  Receive Date: 20130219
  Receipt Date: 20130219
  Transmission Date: 20140127
  Serious: Yes (Other)
  Sender: FDA-Public Use
  Company Number: US-BAYER-2013-017686

PATIENT
  Age: 34 Year
  Sex: Female

DRUGS (2)
  1. MIRENA [Suspect]
     Dosage: 20 MCG/24HR, CONT
     Route: 015
     Dates: start: 200903, end: 20130204
  2. GILDESS 1.5/30 [Suspect]
     Dosage: UNK
     Dates: start: 20130204

REACTIONS (5)
  - Pelvic inflammatory disease [None]
  - Coital bleeding [None]
  - Pain [None]
  - Abdominal distension [None]
  - Withdrawal bleed [None]
